FAERS Safety Report 17044193 (Version 1)
Quarter: 2019Q4

REPORT INFORMATION
  Report Type: Spontaneous
  Country: US (occurrence: US)
  Receive Date: 20191018
  Receipt Date: 20191018
  Transmission Date: 20200122
  Serious: No
  Sender: FDA-Public Use
  Company Number: None

PATIENT
  Age: 69 Year
  Sex: Female

DRUGS (2)
  1. FORTEO [Suspect]
     Active Substance: TERIPARATIDE
     Indication: FIBROMYALGIA
     Route: 058
     Dates: start: 201810
  2. FORTEO [Suspect]
     Active Substance: TERIPARATIDE
     Indication: OSTEOPOROSIS
     Route: 058
     Dates: start: 201810

REACTIONS (6)
  - Mobility decreased [None]
  - Pain in extremity [None]
  - Fall [None]
  - Balance disorder [None]
  - Myalgia [None]
  - Walking aid user [None]

NARRATIVE: CASE EVENT DATE: 20191018
